FAERS Safety Report 7929667-8 (Version None)
Quarter: 2011Q4

REPORT INFORMATION
  Report Type: 
  Country: None (occurrence: None)
  Receive Date: 20111121
  Receipt Date: 20111117
  Transmission Date: 20120403
  Serious: Yes (Death)
  Sender: FDA-Public Use
  Company Number: GB-PFIZER INC-2011267726

PATIENT
  Age: 51 Year
  Sex: Male
  Weight: 100 kg

DRUGS (17)
  1. GEMTUZUMAB OZOGAMICIN [Suspect]
     Indication: MYELODYSPLASTIC SYNDROME
  2. MEROPENEM [Suspect]
     Dosage: 1 G, 3X/DAY
     Route: 042
     Dates: start: 20111005, end: 20111005
  3. ACETYLCYSTEINE [Suspect]
     Dosage: 500 MG, OVER 16 HOURS
     Route: 042
     Dates: start: 20111005, end: 20111009
  4. PIPERACILLIN AND TAZOBACTAM [Suspect]
     Dosage: 4.5 G, 4X/DAY
     Route: 042
     Dates: start: 20111004, end: 20111005
  5. GEMTUZUMAB OZOGAMICIN [Suspect]
     Indication: ACUTE MYELOID LEUKAEMIA
     Dosage: 6 MG, UNK
     Dates: start: 20110923, end: 20111003
  6. CASPOFUNGIN ACETATE [Suspect]
     Indication: ANTIFUNGAL TREATMENT
     Dosage: 70 MG, UNK
     Route: 042
     Dates: start: 20111002, end: 20111004
  7. CYTARABINE [Suspect]
     Indication: ACUTE MYELOID LEUKAEMIA
     Dosage: UNK
     Dates: start: 20110923, end: 20111003
  8. MEROPENEM [Suspect]
     Dosage: 1 G, 2X/DAY
     Route: 042
     Dates: start: 20111006, end: 20111011
  9. AMBISOME [Suspect]
     Dosage: 100 MG, UNK
     Route: 042
     Dates: start: 20111005, end: 20111010
  10. VANCOMYCIN [Suspect]
     Indication: PYREXIA
     Dosage: 1 G, 1X/DAY
     Route: 042
     Dates: start: 20110930, end: 20111003
  11. CASPOFUNGIN ACETATE [Suspect]
     Dosage: 35 MG, UNK
     Route: 042
     Dates: start: 20111005, end: 20111011
  12. DEFIBROTIDE [Suspect]
     Dosage: 600 MG, 4X/DAY
     Route: 042
     Dates: start: 20111005, end: 20111011
  13. CYTARABINE [Suspect]
     Indication: MYELODYSPLASTIC SYNDROME
  14. LINEZOLID [Suspect]
     Dosage: 600 MG, 2X/DAY
     Route: 042
     Dates: start: 20111003, end: 20111005
  15. DAUNORUBICIN HCL [Suspect]
     Indication: ACUTE MYELOID LEUKAEMIA
     Dosage: UNK
     Dates: start: 20110923, end: 20111003
  16. DAUNORUBICIN HCL [Suspect]
     Indication: MYELODYSPLASTIC SYNDROME
  17. MEROPENEM [Suspect]
     Indication: PYREXIA
     Dosage: 1 G, 3X/DAY
     Route: 042
     Dates: start: 20110929, end: 20111004

REACTIONS (1)
  - VENOOCCLUSIVE LIVER DISEASE [None]
